FAERS Safety Report 12245693 (Version 1)
Quarter: 2016Q2

REPORT INFORMATION
  Report Type: Spontaneous
  Country: US (occurrence: None)
  Receive Date: 20160406
  Receipt Date: 20160406
  Transmission Date: 20160815
  Serious: No
  Sender: FDA-Public Use
  Company Number: None

PATIENT
  Age: 60 Year
  Sex: Female

DRUGS (35)
  1. IBRANCE [Suspect]
     Active Substance: PALBOCICLIB
     Indication: BREAST CANCER
     Dosage: 125MG 21 DAYS ON 7 OFF QD FOR 21 DAYS PO
     Route: 048
     Dates: start: 20160304
  2. EXEMESTANE. [Concomitant]
     Active Substance: EXEMESTANE
  3. MIDODRINE [Concomitant]
     Active Substance: MIDODRINE
  4. OXYCODONE [Concomitant]
     Active Substance: OXYCODONE
  5. TRIAMCINOLON CRE [Concomitant]
  6. AMPHET/DEXTRO [Concomitant]
     Active Substance: AMPHETAMINE\DEXTROAMPHETAMINE
  7. DOCQLACE [Concomitant]
     Active Substance: DOCUSATE SODIUM
  8. ISOSORB DIN [Concomitant]
  9. OXYCONTIN [Concomitant]
     Active Substance: OXYCODONE HYDROCHLORIDE
  10. AMOXICILLIN. [Concomitant]
     Active Substance: AMOXICILLIN
  11. CALC ACETATE [Concomitant]
  12. CLINDAMYCIN [Concomitant]
     Active Substance: CLINDAMYCIN\CLINDAMYCIN PHOSPHATE
  13. LORAZEPAM. [Concomitant]
     Active Substance: LORAZEPAM
  14. PROAIR HFA [Concomitant]
     Active Substance: ALBUTEROL SULFATE
  15. RENVELA [Concomitant]
     Active Substance: SEVELAMER CARBONATE
  16. ATORVASTATIN [Concomitant]
     Active Substance: ATORVASTATIN
  17. ENOXAPARIN [Concomitant]
     Active Substance: ENOXAPARIN
  18. HYDROCO/APAP [Concomitant]
     Active Substance: ACETAMINOPHEN\HYDROCODONE
  19. LETROZOLE. [Concomitant]
     Active Substance: LETROZOLE
  20. NOVOLOG [Concomitant]
     Active Substance: INSULIN ASPART
  21. PAXIL [Concomitant]
     Active Substance: PAROXETINE HYDROCHLORIDE
  22. SENNA LAXATIVE [Concomitant]
     Active Substance: SENNOSIDES
  23. LISINOPRIL. [Concomitant]
     Active Substance: LISINOPRIL
  24. VITAMIN D [Concomitant]
     Active Substance: CHOLECALCIFEROL
  25. CARVEDILOL. [Concomitant]
     Active Substance: CARVEDILOL
  26. PAROXETINE. [Concomitant]
     Active Substance: PAROXETINE
  27. WARFARIN [Concomitant]
     Active Substance: WARFARIN
  28. AMOX/K CLAV [Concomitant]
     Active Substance: AMOXICILLIN\CLAVULANATE POTASSIUM
  29. ELIQUIS [Concomitant]
     Active Substance: APIXABAN
  30. HYDRALAZINE [Concomitant]
     Active Substance: HYDRALAZINE HYDROCHLORIDE
  31. LANTUS [Concomitant]
     Active Substance: INSULIN GLARGINE
  32. MULTI-VIT [Concomitant]
     Active Substance: VITAMINS
  33. NEPHRO-VITE [Concomitant]
  34. PREDNISONE. [Concomitant]
     Active Substance: PREDNISONE
  35. TRAZODONE [Concomitant]
     Active Substance: TRAZODONE HYDROCHLORIDE

REACTIONS (1)
  - Fatigue [None]

NARRATIVE: CASE EVENT DATE: 20160304
